FAERS Safety Report 5796675-5 (Version None)
Quarter: 2008Q2

REPORT INFORMATION
  Report Type: 
  Country: None (occurrence: None)
  Receive Date: 20080630
  Receipt Date: 20080630
  Transmission Date: 20081010
  Serious: Yes (Life-Threatening)
  Sender: FDA-Public Use
  Company Number: None

PATIENT
  Sex: Female

DRUGS (2)
  1. OSMOPREP [Suspect]
     Indication: COLONOSCOPY
     Dosage: 32 PO
     Route: 048
     Dates: start: 20070919, end: 20070919
  2. A-2 RECEPTOR BLOCKING AGENT [Concomitant]

REACTIONS (4)
  - DIALYSIS [None]
  - NEPHROPATHY [None]
  - NEPHROTIC SYNDROME [None]
  - RENAL FAILURE [None]
